FAERS Safety Report 6699100-5 (Version None)
Quarter: 2010Q2

REPORT INFORMATION
  Report Type: 
  Country: None (occurrence: None)
  Receive Date: 20100427
  Receipt Date: 20100421
  Transmission Date: 20101027
  Serious: Yes (Other)
  Sender: FDA-Public Use
  Company Number: GB-WYE-G06010410

PATIENT

DRUGS (1)
  1. TYGACIL [Suspect]
     Indication: ACINETOBACTER INFECTION
     Dosage: UNKNOWN

REACTIONS (1)
  - DRUG RESISTANCE [None]
